FAERS Safety Report 23449062 (Version 2)
Quarter: 2024Q1

REPORT INFORMATION
  Report Type: Spontaneous
  Country: US (occurrence: US)
  Receive Date: 20240128
  Receipt Date: 20240131
  Transmission Date: 20240410
  Serious: No
  Sender: FDA-Public Use
  Company Number: US-JNJFOC-20240131543

PATIENT
  Age: 59 Year
  Sex: Female

DRUGS (5)
  1. PEPCID [Suspect]
     Active Substance: FAMOTIDINE
     Indication: Dyspepsia
     Route: 065
  2. PEPCID [Suspect]
     Active Substance: FAMOTIDINE
     Indication: Chest pain
  3. TUMS [Concomitant]
     Active Substance: CALCIUM CARBONATE
     Indication: Chest pain
     Route: 065
  4. TUMS [Concomitant]
     Active Substance: CALCIUM CARBONATE
     Indication: Dyspepsia
  5. XARELTO [Concomitant]
     Active Substance: RIVAROXABAN
     Indication: Blood disorder
     Route: 065
     Dates: start: 202212

REACTIONS (1)
  - Drug ineffective [Not Recovered/Not Resolved]

NARRATIVE: CASE EVENT DATE: 20240106
